FAERS Safety Report 4633440-6 (Version None)
Quarter: 2005Q2

REPORT INFORMATION
  Report Type: 
  Country: None (occurrence: None)
  Receive Date: 20050408
  Receipt Date: 20050330
  Transmission Date: 20051028
  Serious: Yes (Death, Hospitalization)
  Sender: FDA-Public Use
  Company Number: 2005020008

PATIENT
  Age: 44 Year
  Sex: Female

DRUGS (5)
  1. FELBAMATE [Suspect]
     Indication: LENNOX-GASTAUT SYNDROME
     Dosage: *** 4800 MG QD, PO
     Route: 048
     Dates: end: 20041230
  2. DIAZEPAM [Concomitant]
  3. ASPIRIN [Concomitant]
  4. FERROUS SULFATE TAB [Concomitant]
  5. TEGRETOL [Concomitant]

REACTIONS (8)
  - ADENOCARCINOMA OF THE CERVIX [None]
  - CERVIX CANCER METASTATIC [None]
  - CONVULSION [None]
  - DIARRHOEA [None]
  - MENORRHAGIA [None]
  - METASTASIS [None]
  - POST PROCEDURAL NAUSEA [None]
  - VOMITING [None]
